FAERS Safety Report 12758638 (Version 3)
Quarter: 2016Q4

REPORT INFORMATION
  Report Type: Report from Study
  Country: BR (occurrence: BR)
  Receive Date: 20160919
  Receipt Date: 20161025
  Transmission Date: 20170207
  Serious: Yes (Hospitalization, Other)
  Sender: FDA-Public Use
  Company Number: PHHY2016BR127509

PATIENT
  Sex: Female
  Weight: 47 kg

DRUGS (2)
  1. EXELON PATCH [Suspect]
     Active Substance: RIVASTIGMINE
     Indication: DEMENTIA
     Dosage: 9.5 MG, QD PATCH 10 (CM2)
     Route: 062
     Dates: start: 201605
  2. EXELON PATCH [Suspect]
     Active Substance: RIVASTIGMINE
     Indication: MEMORY IMPAIRMENT
     Dosage: 4.6 MG, QD PATCH 5 (CM2)
     Route: 062
     Dates: start: 201604

REACTIONS (11)
  - Vomiting [Unknown]
  - Product adhesion issue [Unknown]
  - Dementia [Unknown]
  - Mobility decreased [Unknown]
  - Dysstasia [Unknown]
  - Gastric disorder [Unknown]
  - Constipation [Recovered/Resolved]
  - Drug ineffective [Unknown]
  - Cognitive disorder [Unknown]
  - Movement disorder [Unknown]
  - Malaise [Unknown]
